FAERS Safety Report 13059704 (Version 2)
Quarter: 2017Q1

REPORT INFORMATION
  Report Type: Spontaneous
  Country: JP (occurrence: JP)
  Receive Date: 20161223
  Receipt Date: 20170123
  Transmission Date: 20170428
  Serious: Yes (Other)
  Sender: FDA-Public Use
  Company Number: JP-ELI_LILLY_AND_COMPANY-JP201612007949

PATIENT
  Age: 71 Year
  Sex: Female

DRUGS (2)
  1. CPT-11 [Concomitant]
     Active Substance: IRINOTECAN
     Indication: RECTOSIGMOID CANCER
     Dosage: UNK UNK, UNKNOWN
     Route: 065
  2. ERBITUX [Suspect]
     Active Substance: CETUXIMAB
     Indication: RECTOSIGMOID CANCER
     Dosage: UNK UNK, UNKNOWN
     Route: 042

REACTIONS (4)
  - Cancer pain [Unknown]
  - Radiation necrosis [Recovering/Resolving]
  - Fall [Unknown]
  - Hemiplegia [Recovering/Resolving]
